FAERS Safety Report 8493805-1 (Version None)
Quarter: 2012Q3

REPORT INFORMATION
  Report Type: 
  Country: None (occurrence: None)
  Receive Date: 20120706
  Receipt Date: 20120627
  Transmission Date: 20120928
  Serious: Yes (Other)
  Sender: FDA-Public Use
  Company Number: CA-BAXTER-2012BAX009865

PATIENT
  Age: 47 Year
  Sex: Female
  Weight: 83.5 kg

DRUGS (5)
  1. EXTRANEAL [Suspect]
     Route: 033
     Dates: start: 20120621, end: 20120624
  2. CALCITRIOL [Concomitant]
     Route: 048
     Dates: start: 20120608
  3. DOCUSATE CALCIUM [Concomitant]
     Dosage: 100 CAPSULE
     Route: 048
     Dates: start: 20120529
  4. MULTIPLE VITAMINS [Concomitant]
     Dosage: 1 TABLET
     Route: 048
  5. EXTRANEAL [Suspect]
     Indication: PERITONEAL DIALYSIS
     Route: 033
     Dates: start: 20120614, end: 20120619

REACTIONS (3)
  - EYE PRURITUS [None]
  - PRURITUS [None]
  - URTICARIA [None]
